FAERS Safety Report 17709849 (Version 1)
Quarter: 2020Q2

REPORT INFORMATION
  Report Type: Spontaneous
  Country: CN (occurrence: CN)
  Receive Date: 20200427
  Receipt Date: 20200427
  Transmission Date: 20200714
  Serious: Yes (Other)
  Sender: FDA-Public Use
  Company Number: CN-ROCHE-2587404

PATIENT
  Age: 21 Year
  Sex: Male

DRUGS (6)
  1. CELLCEPT [Suspect]
     Active Substance: MYCOPHENOLATE MOFETIL\MYCOPHENOLATE MOFETIL HYDROCHLORIDE
     Indication: NEPHROTIC SYNDROME
     Route: 065
  2. PREDNISONE. [Concomitant]
     Active Substance: PREDNISONE
     Indication: NEPHROTIC SYNDROME
     Dosage: ADMINISTRATION OF 60 MG AND REDUCED TO 10MG
     Route: 065
     Dates: start: 2007
  3. CYCLOSPORIN [Concomitant]
     Active Substance: CYCLOSPORINE
     Indication: NEPHROTIC SYNDROME
     Route: 065
     Dates: start: 2015
  4. TACROLIMUS. [Concomitant]
     Active Substance: TACROLIMUS
     Indication: PNEUMONIA
     Route: 065
  5. TACROLIMUS. [Concomitant]
     Active Substance: TACROLIMUS
     Indication: NEPHROTIC SYNDROME
     Route: 065
  6. PREDNISOLONE. [Concomitant]
     Active Substance: PREDNISOLONE
     Indication: NEPHROTIC SYNDROME
     Route: 065

REACTIONS (9)
  - Glomerulonephropathy [Unknown]
  - Off label use [Unknown]
  - Bronchitis [Unknown]
  - Nephritic syndrome [Unknown]
  - Renal cyst [Unknown]
  - Pleural effusion [Unknown]
  - Ascites [Unknown]
  - Respiratory tract infection [Unknown]
  - Intentional product use issue [Unknown]
